FAERS Safety Report 8397790-2 (Version None)
Quarter: 2012Q2

REPORT INFORMATION
  Report Type: 
  Country: None (occurrence: None)
  Receive Date: 20120531
  Receipt Date: 20120523
  Transmission Date: 20120825
  Serious: Yes (Other)
  Sender: FDA-Public Use
  Company Number: BR-SANOFI-AVENTIS-2011SA033394

PATIENT
  Age: 26 Year
  Sex: Female

DRUGS (3)
  1. ALL OTHER THERAPEUTIC PRODUCTS [Concomitant]
     Indication: UTERINE DISORDER
     Route: 067
     Dates: start: 20110401, end: 20111101
  2. VITAMINS NOS [Concomitant]
     Indication: VITAMIN SUPPLEMENTATION
     Route: 048
     Dates: start: 20110301, end: 20111101
  3. ENOXAPARIN SODIUM [Suspect]
     Route: 058
     Dates: start: 20110201, end: 20111201

REACTIONS (8)
  - PREMATURE SEPARATION OF PLACENTA [None]
  - WRONG TECHNIQUE IN DRUG USAGE PROCESS [None]
  - HAEMORRHAGE IN PREGNANCY [None]
  - EXPOSURE DURING BREAST FEEDING [None]
  - MATERNAL EXPOSURE DURING PREGNANCY [None]
  - CAESAREAN SECTION [None]
  - INJECTION SITE PAIN [None]
  - BLOOD PRESSURE DECREASED [None]
